FAERS Safety Report 7912897-9 (Version None)
Quarter: 2011Q4

REPORT INFORMATION
  Report Type: 
  Country: None (occurrence: None)
  Receive Date: 20111114
  Receipt Date: 20111109
  Transmission Date: 20120403
  Serious: Yes (Other)
  Sender: FDA-Public Use
  Company Number: US-PFIZER INC-2011275138

PATIENT
  Sex: Male
  Weight: 92.971 kg

DRUGS (2)
  1. DEPAKOTE [Concomitant]
     Dosage: UNK
  2. GEODON [Suspect]
     Indication: BIPOLAR DISORDER
     Dosage: 160 MG (2 OF 80MG), 1X/DAY
     Route: 048
     Dates: start: 20080101, end: 20090101

REACTIONS (3)
  - NEUROPATHY PERIPHERAL [None]
  - DIARRHOEA [None]
  - FAECAL INCONTINENCE [None]
